FAERS Safety Report 7326457 (Version 2)
Quarter: 2013Q4

REPORT INFORMATION
  Report Type: Spontaneous
  Country: US (occurrence: US)
  Receive Date: 20100320
  Receipt Date: 20131125
  Transmission Date: 20140711
  Serious: No
  Sender: FDA-Public Use
  Company Number: US-JNJFOC-20100302966

PATIENT
  Age: 23 Year
  Sex: Male
  Weight: 63.5 kg

DRUGS (2)
  1. SANDOZ FENTANYL TRANSDERMAL SYSTEM [Suspect]
     Indication: PAIN MANAGEMENT
     Route: 062
     Dates: start: 201002
  2. MANY OTHER UNSPECIFIED MEDICATIONS [Concomitant]
     Route: 065

REACTIONS (4)
  - Drug effect increased [Not Recovered/Not Resolved]
  - Drug prescribing error [Unknown]
  - Product adhesion issue [Unknown]
  - Product quality issue [Unknown]
